FAERS Safety Report 9269299 (Version 1)
Quarter: 2013Q2

REPORT INFORMATION
  Report Type: Spontaneous
  Country: US (occurrence: US)
  Receive Date: 20130503
  Receipt Date: 20130503
  Transmission Date: 20140414
  Serious: No
  Sender: FDA-Public Use
  Company Number: US-PFIZER INC-2013134175

PATIENT
  Sex: 0

DRUGS (2)
  1. SUTENT [Suspect]
     Indication: METASTATIC RENAL CELL CARCINOMA
     Dosage: UNK
  2. INLYTA [Suspect]
     Indication: METASTATIC NEOPLASM
     Dosage: UNK

REACTIONS (3)
  - Off label use [Unknown]
  - Weight increased [Unknown]
  - Fluid retention [Recovered/Resolved]
